FAERS Safety Report 21947916 (Version 2)
Quarter: 2023Q1

REPORT INFORMATION
  Report Type: Spontaneous
  Country: US (occurrence: US)
  Receive Date: 20230203
  Receipt Date: 20230303
  Transmission Date: 20230417
  Serious: No
  Sender: FDA-Public Use
  Company Number: US-ALKERMES INC.-ALK-2023-000084

PATIENT
  Age: 64 Year
  Sex: Male

DRUGS (1)
  1. VIVITROL [Suspect]
     Active Substance: NALTREXONE
     Indication: Alcoholism
     Dosage: 380 MILLIGRAM, Q28D
     Route: 030
     Dates: start: 20221205

REACTIONS (3)
  - Therapeutic response shortened [Unknown]
  - Insomnia [Unknown]
  - Alcohol use [Unknown]

NARRATIVE: CASE EVENT DATE: 20230110
